FAERS Safety Report 5197128-8 (Version None)
Quarter: 2007Q1

REPORT INFORMATION
  Report Type: 
  Country: None (occurrence: None)
  Receive Date: 20070103
  Receipt Date: 20061228
  Transmission Date: 20070707
  Serious: Yes (Other)
  Sender: FDA-Public Use
  Company Number: US-GLAXOSMITHKLINE-A0631332A

PATIENT
  Age: 45 Year
  Sex: Female

DRUGS (13)
  1. LAMICTAL [Suspect]
     Indication: DRUG USE FOR UNKNOWN INDICATION
     Dosage: 200MG PER DAY
     Route: 048
     Dates: start: 20060406
  2. LITHIUM CARBONATE [Concomitant]
     Dosage: 150MG PER DAY
  3. LUNESTA [Concomitant]
     Indication: INSOMNIA
  4. CYMBALTA [Concomitant]
     Indication: DEPRESSION
     Dosage: 30MG PER DAY
  5. LASIX [Concomitant]
  6. MICARDIS [Concomitant]
  7. COREG [Concomitant]
     Indication: HYPERTENSION
  8. VYTORIN [Concomitant]
  9. ACTOS [Concomitant]
     Indication: DIABETES MELLITUS
  10. INSULIN [Concomitant]
     Indication: DIABETES MELLITUS
  11. INHALERS [Concomitant]
  12. ASPIRIN [Concomitant]
  13. SYNTHROID [Concomitant]
     Indication: HYPOTHYROIDISM

REACTIONS (1)
  - FURUNCLE [None]
